FAERS Safety Report 6183612-7 (Version None)
Quarter: 2009Q2

REPORT INFORMATION
  Report Type: 
  Country: None (occurrence: None)
  Receive Date: 20090508
  Receipt Date: 20090430
  Transmission Date: 20091009
  Serious: Yes (Other)
  Sender: FDA-Public Use
  Company Number: DE-PFIZER INC-2008095891

PATIENT

DRUGS (2)
  1. CLINDAMYCIN PHOSPHATE [Suspect]
     Indication: UTERINE DILATION AND CURETTAGE
     Dosage: UNK
     Route: 067
     Dates: start: 20081103
  2. SILVER [Concomitant]
     Dates: start: 20080101

REACTIONS (1)
  - ABORTION SPONTANEOUS [None]
